FAERS Safety Report 14824704 (Version 1)
Quarter: 2018Q2

REPORT INFORMATION
  Report Type: Report from Study
  Country: ZA (occurrence: ZA)
  Receive Date: 20180429
  Receipt Date: 20180429
  Transmission Date: 20180711
  Serious: Yes (Hospitalization)
  Sender: FDA-Public Use
  Company Number: ZA-NOVOPROD-595552

PATIENT
  Age: 60 Year
  Sex: Female
  Weight: 92 kg

DRUGS (7)
  1. DIAGLUCIDE [Concomitant]
     Active Substance: GLICLAZIDE
     Dosage: 120.0,MG,
     Dates: start: 20140324, end: 20160420
  2. GLUCOPHAGE [Concomitant]
     Active Substance: METFORMIN HYDROCHLORIDE
     Dosage: 2000.0,MG,
     Dates: start: 20070227, end: 20160630
  3. DIAGLUCIDE [Concomitant]
     Active Substance: GLICLAZIDE
     Dosage: 60.0,MG,
     Dates: start: 20160421, end: 20160706
  4. GLUCOPHAGE [Concomitant]
     Active Substance: METFORMIN HYDROCHLORIDE
     Dosage: 2000.0,MG,
     Dates: start: 20160707
  5. FORXIGA [Concomitant]
     Active Substance: DAPAGLIFLOZIN
     Dosage: 10 MG, UNK
     Dates: start: 20180424
  6. INSULIN DEGLUDEC LIRAGLUTIDE PDS290 [Suspect]
     Active Substance: INSULIN DEGLUDEC\LIRAGLUTIDE
     Indication: TYPE 2 DIABETES MELLITUS
     Dosage: 40.0,DOSE STEP,QD
     Route: 058
     Dates: start: 20160414
  7. DIAGLUCIDE [Concomitant]
     Active Substance: GLICLAZIDE
     Dosage: 120.0 U, UNK
     Dates: start: 20180413

REACTIONS (2)
  - Bronchitis [Recovered/Resolved]
  - Chronic gastritis [Recovered/Resolved]

NARRATIVE: CASE EVENT DATE: 20180312
